FAERS Safety Report 25870924 (Version 2)
Quarter: 2025Q4

REPORT INFORMATION
  Report Type: Spontaneous
  Country: US (occurrence: US)
  Receive Date: 20251001
  Receipt Date: 20251016
  Transmission Date: 20260117
  Serious: Yes (Hospitalization)
  Sender: DERMARITE INDUSTRIES
  Company Number: US-DERMARITE INDUSTRIES, LLC.-2025-DER-US000044

PATIENT

DRUGS (6)
  1. COSMETICS [Suspect]
     Active Substance: COSMETICS
     Indication: Product used for unknown indication
     Dosage: 2-3 TIMES DAILY, 7.5 OZ
     Route: 061
     Dates: start: 202502
  2. COSMETICS [Suspect]
     Active Substance: COSMETICS
     Dosage: 2-3 TIMES DAILY, 7.5 OZ
     Route: 061
     Dates: start: 202502
  3. PERIGUARD [Suspect]
     Active Substance: PETROLATUM
     Indication: Product used for unknown indication
     Dosage: UNK, BID
     Route: 061
     Dates: start: 202502
  4. COSMETICS [Suspect]
     Active Substance: COSMETICS
     Indication: Product used for unknown indication
     Dosage: UNK
     Route: 061
     Dates: start: 202502
  5. COSMETICS [Suspect]
     Active Substance: COSMETICS
     Indication: Dry skin
     Dosage: 2-3 TIMES A WEEK, 7.5 OZ
     Route: 061
     Dates: start: 202502
  6. COSMETICS [Suspect]
     Active Substance: COSMETICS
     Dosage: 2-3 TIMES A WEEK, 7.5 OZ
     Route: 061
     Dates: start: 202502

REACTIONS (2)
  - Sepsis [Recovered/Resolved]
  - Bacteraemia [Recovered/Resolved]

NARRATIVE: CASE EVENT DATE: 20250901
